FAERS Safety Report 6804116-1 (Version None)
Quarter: 2010Q2

REPORT INFORMATION
  Report Type: 
  Country: None (occurrence: None)
  Receive Date: 20100628
  Receipt Date: 20070305
  Transmission Date: 20101027
  Serious: No
  Sender: FDA-Public Use
  Company Number: US-PFIZER INC-2007000537

PATIENT
  Sex: Female

DRUGS (3)
  1. SUTENT [Suspect]
     Indication: SQUAMOUS CELL CARCINOMA
     Route: 048
     Dates: start: 20061116
  2. SODIUM PHENYLBUTYRATE [Concomitant]
     Route: 048
  3. ERLOTINIB [Concomitant]
     Route: 048

REACTIONS (2)
  - VISION BLURRED [None]
  - VISUAL IMPAIRMENT [None]
